FAERS Safety Report 6763459-0 (Version None)
Quarter: 2010Q2

REPORT INFORMATION
  Report Type: 
  Country: None (occurrence: None)
  Receive Date: 20100608
  Receipt Date: 20100528
  Transmission Date: 20101027
  Serious: Yes (Disabling)
  Sender: FDA-Public Use
  Company Number: OSCN-NO-0903S-0173

PATIENT

DRUGS (5)
  1. OMNISCAN [Suspect]
     Indication: DRUG USE FOR UNKNOWN INDICATION
     Dosage: 40 ML, SINGLE DOSE, I.V.
     Route: 042
     Dates: start: 20051208, end: 20051208
  2. MAGNEVIST [Concomitant]
  3. EPOITIN BETA (NEORECORMON) [Concomitant]
  4. AZATHIOPRINE [Concomitant]
  5. SANDIMMUNE [Concomitant]

REACTIONS (8)
  - ALOPECIA [None]
  - DRY MOUTH [None]
  - INSOMNIA [None]
  - MENTAL DISORDER [None]
  - NEPHROGENIC SYSTEMIC FIBROSIS [None]
  - ORAL FUNGAL INFECTION [None]
  - OSTEOARTHRITIS [None]
  - RESTLESSNESS [None]
